FAERS Safety Report 22181832 (Version 1)
Quarter: 2023Q2

REPORT INFORMATION
  Report Type: Spontaneous
  Country: FR (occurrence: FR)
  Receive Date: 20230406
  Receipt Date: 20230406
  Transmission Date: 20230721
  Serious: Yes (Life-Threatening, Other)
  Sender: FDA-Public Use
  Company Number: FR-AMOMED-2023000192

PATIENT
  Age: 73 Year
  Sex: Male

DRUGS (3)
  1. SOLU-MEDROL [Suspect]
     Active Substance: METHYLPREDNISOLONE SODIUM SUCCINATE
     Dosage: UNK
     Route: 042
  2. LANDIOLOL HYDROCHLORIDE [Suspect]
     Active Substance: LANDIOLOL HYDROCHLORIDE
     Indication: Atrial fibrillation
     Dosage: 6 MG/ML
  3. LANDIOLOL HYDROCHLORIDE [Suspect]
     Active Substance: LANDIOLOL HYDROCHLORIDE
     Dosage: UNK, START DATE AND DOSAGE UNKNOWN
     Route: 042

REACTIONS (3)
  - Cardiac arrest [Recovered/Resolved]
  - Bradycardia [Recovering/Resolving]
  - Product administration error [Unknown]
